FAERS Safety Report 23470828 (Version 1)
Quarter: 2024Q1

REPORT INFORMATION
  Report Type: Spontaneous
  Country: CN (occurrence: CN)
  Receive Date: 20240202
  Receipt Date: 20240202
  Transmission Date: 20240409
  Serious: Yes (Other)
  Sender: FDA-Public Use
  Company Number: CN-JNJFOC-20240175988

PATIENT
  Age: 7 Year
  Sex: Male
  Weight: 28 kg

DRUGS (12)
  1. MOTRIN INFANTS [Suspect]
     Active Substance: IBUPROFEN
     Indication: Pyrexia
     Route: 048
     Dates: start: 20231216, end: 20231220
  2. MOTRIN INFANTS [Suspect]
     Active Substance: IBUPROFEN
     Indication: Upper respiratory tract infection
  3. SODIUM CHLORIDE [Suspect]
     Active Substance: SODIUM CHLORIDE
     Indication: Pyrexia
     Route: 042
     Dates: start: 202312
  4. SODIUM CHLORIDE [Suspect]
     Active Substance: SODIUM CHLORIDE
     Indication: Upper respiratory tract infection
  5. CEFTRIAXONE SODIUM [Suspect]
     Active Substance: CEFTRIAXONE SODIUM
     Indication: Pyrexia
     Route: 042
     Dates: start: 202312
  6. CEFTRIAXONE SODIUM [Suspect]
     Active Substance: CEFTRIAXONE SODIUM
     Indication: Upper respiratory tract infection
  7. DEXTROSE [Suspect]
     Active Substance: DEXTROSE\DEXTROSE MONOHYDRATE
     Indication: Pyrexia
     Route: 065
     Dates: start: 202312
  8. DEXTROSE [Suspect]
     Active Substance: DEXTROSE\DEXTROSE MONOHYDRATE
     Indication: Upper respiratory tract infection
  9. VITAMIN C [Suspect]
     Active Substance: ASCORBIC ACID
     Indication: Pyrexia
     Route: 065
     Dates: start: 202312
  10. VITAMIN C [Suspect]
     Active Substance: ASCORBIC ACID
     Indication: Upper respiratory tract infection
  11. VITAMIN B6 [Suspect]
     Active Substance: PYRIDOXINE HYDROCHLORIDE
     Indication: Pyrexia
     Route: 065
     Dates: start: 202312
  12. VITAMIN B6 [Suspect]
     Active Substance: PYRIDOXINE HYDROCHLORIDE
     Indication: Upper respiratory tract infection

REACTIONS (2)
  - Product administered to patient of inappropriate age [Recovering/Resolving]
  - Drug hypersensitivity [Recovering/Resolving]

NARRATIVE: CASE EVENT DATE: 20231201
